FAERS Safety Report 7450409-7 (Version None)
Quarter: 2011Q1

REPORT INFORMATION
  Report Type: 
  Country: None (occurrence: None)
  Receive Date: 20110302
  Receipt Date: 20101102
  Transmission Date: 20110831
  Serious: Yes (Other)
  Sender: FDA-Public Use
  Company Number: 021533

PATIENT
  Sex: Female

DRUGS (1)
  1. CIMZIA [Suspect]
     Indication: CROHN'S DISEASE
     Dosage: (SUBCUTANEOUS)
     Route: 058
     Dates: start: 20091210

REACTIONS (6)
  - BACK PAIN [None]
  - PLATELET FUNCTION TEST ABNORMAL [None]
  - BLOOD IRON DECREASED [None]
  - ANAEMIA [None]
  - PAIN [None]
  - MALAISE [None]
